FAERS Safety Report 11276210 (Version 2)
Quarter: 2015Q3

REPORT INFORMATION
  Report Type: Spontaneous
  Country: DK (occurrence: DK)
  Receive Date: 20150716
  Receipt Date: 20150722
  Transmission Date: 20151125
  Serious: Yes (Death, Other)
  Sender: FDA-Public Use
  Company Number: DK-TEVA-579158ISR

PATIENT
  Age: 60 Year
  Sex: Female

DRUGS (6)
  1. AMPHOTERICIN B. [Suspect]
     Active Substance: AMPHOTERICIN B
     Indication: BRONCHOPULMONARY ASPERGILLOSIS
     Route: 065
  2. RITUXIMAB [Suspect]
     Active Substance: RITUXIMAB
     Indication: PARANEOPLASTIC PEMPHIGUS
     Route: 065
  3. VORICONAZOLE. [Suspect]
     Active Substance: VORICONAZOLE
     Dosage: 4 MG/KG (LOADING DOSE)
     Route: 042
  4. BENDAMUSTINE [Suspect]
     Active Substance: BENDAMUSTINE
     Indication: PARANEOPLASTIC PEMPHIGUS
     Route: 065
  5. VORICONAZOLE. [Suspect]
     Active Substance: VORICONAZOLE
     Indication: BRONCHOPULMONARY ASPERGILLOSIS
     Dosage: 3 MG/KG
     Route: 042
  6. PREDNISOLONE. [Suspect]
     Active Substance: PREDNISOLONE
     Indication: PARANEOPLASTIC PEMPHIGUS
     Dosage: 30 MG/DAY
     Route: 065

REACTIONS (4)
  - Drug resistance [Recovered/Resolved]
  - Death [Fatal]
  - Bronchopulmonary aspergillosis [Recovering/Resolving]
  - Nephropathy toxic [Unknown]
